FAERS Safety Report 9092492 (Version 1)
Quarter: 2013Q1

REPORT INFORMATION
  Report Type: Spontaneous
  Country: FR (occurrence: FR)
  Receive Date: 20130131
  Receipt Date: 20130131
  Transmission Date: 20140127
  Serious: Yes (Congenital Anomaly, Other)
  Sender: FDA-Public Use
  Company Number: FR-ELI_LILLY_AND_COMPANY-FR201301007237

PATIENT
  Sex: Female

DRUGS (14)
  1. PROZAC [Suspect]
     Dosage: 20 MG, UNKNOWN
     Route: 064
     Dates: end: 20111118
  2. PROZAC [Suspect]
     Dosage: 20 MG, UNKNOWN
     Route: 064
     Dates: end: 20111118
  3. ARANESP [Concomitant]
     Dosage: 0.06 MG, UNK
     Route: 064
  4. ARANESP [Concomitant]
     Dosage: 0.06 MG, UNK
     Route: 064
  5. FERINJECT [Concomitant]
     Dosage: 500 MG, UNK
     Route: 064
  6. FERINJECT [Concomitant]
     Dosage: 500 MG, UNK
     Route: 064
  7. GUTRON [Concomitant]
     Dosage: 2.5 MG, UNK
     Route: 064
     Dates: start: 20111118
  8. GUTRON [Concomitant]
     Dosage: 2.5 MG, UNK
     Route: 064
     Dates: start: 20111118
  9. TAREG [Concomitant]
     Dosage: 40 MG, UNK
     Route: 064
     Dates: start: 20111118
  10. TAREG [Concomitant]
     Dosage: 40 MG, UNK
     Route: 064
     Dates: start: 20111118
  11. SPECIAFOLDINE [Concomitant]
     Dosage: 0.4 MG, UNK
     Route: 064
     Dates: start: 20120222
  12. SPECIAFOLDINE [Concomitant]
     Dosage: 0.4 MG, UNK
     Route: 064
     Dates: start: 20120222
  13. LANTUS [Concomitant]
     Route: 064
  14. LANTUS [Concomitant]
     Route: 064

REACTIONS (3)
  - Caudal regression syndrome [Not Recovered/Not Resolved]
  - Premature baby [Unknown]
  - Foetal exposure during pregnancy [Recovered/Resolved]
